FAERS Safety Report 7781580-5 (Version None)
Quarter: 2011Q3

REPORT INFORMATION
  Report Type: 
  Country: None (occurrence: None)
  Receive Date: 20110927
  Receipt Date: 20110923
  Transmission Date: 20111222
  Serious: No
  Sender: FDA-Public Use
  Company Number: US-PFIZER INC-2011227342

PATIENT
  Sex: Male
  Weight: 140.14 kg

DRUGS (4)
  1. PRILOSEC [Concomitant]
     Dosage: 20 MG, 1X/DAY
  2. IBUPROFEN (ADVIL) [Suspect]
     Indication: HEADACHE
     Dosage: 200 MG, 2X/DAY
  3. POTASSIUM CHLORIDE [Concomitant]
     Dosage: 10 MEQ, UNK
  4. FUROSEMIDE [Concomitant]
     Dosage: 20 MG, UNK

REACTIONS (3)
  - DEPRESSION [None]
  - URTICARIA [None]
  - PRURITUS [None]
